FAERS Safety Report 8155562-8 (Version None)
Quarter: 2012Q1

REPORT INFORMATION
  Report Type: 
  Country: None (occurrence: None)
  Receive Date: 20120222
  Receipt Date: 20120209
  Transmission Date: 20120608
  Serious: Yes (Hospitalization, Other)
  Sender: FDA-Public Use
  Company Number: IN-ELI_LILLY_AND_COMPANY-IN201202004737

PATIENT
  Sex: Male

DRUGS (9)
  1. METOLAZONE [Concomitant]
     Dosage: UNK
     Dates: start: 20120102
  2. ASPIRIN [Concomitant]
  3. GLIMEPIRIDE [Concomitant]
     Indication: TYPE 2 DIABETES MELLITUS
     Dosage: 4 MG, UNK
     Dates: start: 20110511
  4. POTASSIUM CHLORIDE [Concomitant]
     Dosage: UNK
     Dates: start: 20120102, end: 20120106
  5. LASIX [Concomitant]
     Dosage: UNK
     Dates: start: 20120104, end: 20120106
  6. NITROGLYCERIN [Concomitant]
     Dosage: UNK
     Dates: start: 20120104, end: 20120106
  7. PIOGLITAZONE [Suspect]
     Indication: TYPE 2 DIABETES MELLITUS
     Dosage: 30 MG, UNKNOWN
     Route: 065
     Dates: start: 20110511
  8. HUMULIN N [Suspect]
     Indication: TYPE 2 DIABETES MELLITUS
     Dosage: 20 IU/U, UNKNOWN
     Route: 065
     Dates: start: 20110511
  9. SORBITRATE [Concomitant]
     Dosage: UNK
     Dates: start: 20110801

REACTIONS (3)
  - RENAL FAILURE CHRONIC [None]
  - HYPOGLYCAEMIC UNCONSCIOUSNESS [None]
  - LOSS OF CONSCIOUSNESS [None]
